FAERS Safety Report 10854728 (Version 2)
Quarter: 2015Q1

REPORT INFORMATION
  Report Type: Spontaneous
  Country: US (occurrence: US)
  Receive Date: 20150223
  Receipt Date: 20150325
  Transmission Date: 20150721
  Serious: Yes (Other)
  Sender: FDA-Public Use
  Company Number: US-ROXANE LABORATORIES, INC.-2015-RO-00294RO

PATIENT
  Age: 70 Year
  Sex: Female

DRUGS (1)
  1. METHOTREXATE [Suspect]
     Active Substance: METHOTREXATE
     Indication: ARTHRITIS
     Route: 065

REACTIONS (4)
  - Product quality issue [Unknown]
  - Gastrointestinal inflammation [Unknown]
  - Drug ineffective [Unknown]
  - Diarrhoea [Unknown]
